FAERS Safety Report 11068392 (Version 1)
Quarter: 2015Q2

REPORT INFORMATION
  Report Type: Spontaneous
  Country: US (occurrence: US)
  Receive Date: 20150427
  Receipt Date: 20150427
  Transmission Date: 20150821
  Serious: No
  Sender: FDA-Public Use
  Company Number: US-ASTRAZENECA-2014SE27267

PATIENT
  Sex: Male

DRUGS (5)
  1. OTHER NASAL SPRAYS [Concomitant]
  2. RHINOCORT AQUA [Suspect]
     Active Substance: BUDESONIDE
     Indication: UPPER-AIRWAY COUGH SYNDROME
     Dosage: NOT REPORTED NR
     Route: 045
  3. RHINOCORT AQUA [Suspect]
     Active Substance: BUDESONIDE
     Indication: COUGH
     Dosage: NOT REPORTED NR
     Route: 045
  4. RHINOCORT AQUA [Suspect]
     Active Substance: BUDESONIDE
     Indication: COUGH
     Dosage: NOT REPORTED NR
     Route: 045
  5. RHINOCORT AQUA [Suspect]
     Active Substance: BUDESONIDE
     Indication: UPPER-AIRWAY COUGH SYNDROME
     Dosage: NOT REPORTED NR
     Route: 045

REACTIONS (3)
  - Product use issue [Unknown]
  - Intentional product misuse [Unknown]
  - Epistaxis [Unknown]
